FAERS Safety Report 8618114-9 (Version None)
Quarter: 2012Q3

REPORT INFORMATION
  Report Type: 
  Country: None (occurrence: None)
  Receive Date: 20120824
  Receipt Date: 20120501
  Transmission Date: 20120928
  Serious: No
  Sender: FDA-Public Use
  Company Number: US-ASTRAZENECA-2012SE28151

PATIENT
  Age: 69 Year
  Sex: Male
  Weight: 105.7 kg

DRUGS (8)
  1. SYMBICORT [Suspect]
     Dosage: 160/4.5 MCG, 2 PUFFS TWO TIMES A DAY
     Route: 055
     Dates: start: 20120401
  2. METOPROLOL TARTRATE [Concomitant]
     Indication: CARDIAC DISORDER
  3. ASPIRIN [Concomitant]
  4. SYMBICORT [Suspect]
     Dosage: 160/4.5 MCG, 1 PUFF TWO TIMES A DAY
     Route: 055
     Dates: start: 20120429
  5. SIMVASTATIN [Concomitant]
     Indication: BLOOD CHOLESTEROL
  6. SYMBICORT [Suspect]
     Indication: CHRONIC OBSTRUCTIVE PULMONARY DISEASE
     Dosage: 160/4.5 MCG, 2 PUFFS TWO TIMES A DAY
     Route: 055
     Dates: start: 20111101
  7. LOSARTAN POTASSIUM [Concomitant]
     Indication: CARDIAC DISORDER
  8. OMEPRAZOLE [Concomitant]
     Indication: GASTROOESOPHAGEAL REFLUX DISEASE

REACTIONS (4)
  - MUSCLE SPASMS [None]
  - POLLAKIURIA [None]
  - OFF LABEL USE [None]
  - DIABETES MELLITUS [None]
